FAERS Safety Report 25630826 (Version 2)
Quarter: 2025Q3

REPORT INFORMATION
  Report Type: Spontaneous
  Country: US (occurrence: US)
  Receive Date: 20250801
  Receipt Date: 20250813
  Transmission Date: 20251020
  Serious: Yes (Other)
  Sender: ORPHALAN
  Company Number: US-ORPHALAN-US-ORP-25-00180

PATIENT

DRUGS (5)
  1. CUVRIOR [Suspect]
     Active Substance: TRIENTINE TETRAHYDROCHLORIDE
     Indication: Hepato-lenticular degeneration
     Dosage: 750 MILLIGRAM, IN THE MORNING
     Route: 048
     Dates: start: 20250605
  2. CUVRIOR [Suspect]
     Active Substance: TRIENTINE TETRAHYDROCHLORIDE
     Dosage: 600 MILLIGRAM, IN THE EVENING
     Route: 048
     Dates: start: 20250605
  3. PREDNISONE [Concomitant]
     Active Substance: PREDNISONE
     Indication: Encephalitis autoimmune
     Route: 065
  4. LIDOCAINE [Concomitant]
     Active Substance: LIDOCAINE
     Indication: Product used for unknown indication
     Route: 065
  5. KEFLEX [Concomitant]
     Active Substance: CEPHALEXIN
     Indication: Product used for unknown indication
     Route: 065

REACTIONS (6)
  - Hashimoto^s encephalopathy [Unknown]
  - Autoimmune disorder [Unknown]
  - Hallucination [Unknown]
  - Paronychia [Unknown]
  - Overdose [Unknown]
  - Packaging design issue [Unknown]
